FAERS Safety Report 8265332-8 (Version None)
Quarter: 2012Q2

REPORT INFORMATION
  Report Type: 
  Country: None (occurrence: None)
  Receive Date: 20120406
  Receipt Date: 20120326
  Transmission Date: 20120825
  Serious: Yes (Hospitalization)
  Sender: FDA-Public Use
  Company Number: IL-SANOFI-AVENTIS-2012SA019515

PATIENT
  Age: 55 Year
  Sex: Male

DRUGS (3)
  1. JEVTANA KIT [Suspect]
     Indication: PROSTATE CANCER
     Route: 042
  2. PREDNISONE TAB [Concomitant]
     Indication: PROSTATE CANCER
     Route: 065
  3. JEVTANA KIT [Suspect]
     Route: 042
     Dates: start: 20111117, end: 20111117

REACTIONS (1)
  - PNEUMONITIS [None]
